FAERS Safety Report 7991567-5 (Version None)
Quarter: 2011Q4

REPORT INFORMATION
  Report Type: 
  Country: None (occurrence: None)
  Receive Date: 20111219
  Receipt Date: 20111214
  Transmission Date: 20120403
  Serious: Yes (Congenital Anomaly, Other)
  Sender: FDA-Public Use
  Company Number: US-PFIZER INC-2011297709

PATIENT
  Sex: Male

DRUGS (11)
  1. NASAL SALINE [Concomitant]
     Indication: NASAL CONGESTION
     Dosage: UNK
     Route: 064
  2. EFFEXOR [Suspect]
     Indication: POSTPARTUM DEPRESSION
     Dosage: 150 MG, UNK
     Route: 064
     Dates: end: 20041101
  3. EFFEXOR [Suspect]
     Dosage: 75 MG, UNK
     Route: 064
     Dates: end: 20050915
  4. EFFEXOR [Suspect]
     Dosage: 37.5 MG, UNK
     Route: 064
     Dates: start: 20050915, end: 20051201
  5. PSEUDOEPHEDRINE [Concomitant]
     Indication: DYSPNOEA
     Dosage: UNK
     Route: 064
  6. EFFEXOR [Suspect]
     Dosage: 35 MG, UNK
     Route: 064
  7. GUAIFENESIN [Concomitant]
     Indication: NASAL CONGESTION
  8. EFFEXOR [Suspect]
     Dosage: 112.5 MG, UNK
     Route: 064
     Dates: start: 20041101
  9. PSEUDOEPHEDRINE [Concomitant]
     Indication: NASAL CONGESTION
  10. MULTI-VITAMINS [Concomitant]
     Dosage: UNK
     Route: 064
  11. GUAIFENESIN [Concomitant]
     Indication: DYSPNOEA
     Dosage: UNK
     Route: 064

REACTIONS (4)
  - COARCTATION OF THE AORTA [None]
  - BICUSPID AORTIC VALVE [None]
  - ELECTROCARDIOGRAM QT PROLONGED [None]
  - MATERNAL EXPOSURE DURING PREGNANCY [None]
